FAERS Safety Report 10406149 (Version 3)
Quarter: 2015Q1

REPORT INFORMATION
  Report Type: Spontaneous
  Country: US (occurrence: None)
  Receive Date: 20140821
  Receipt Date: 20150130
  Transmission Date: 20150720
  Serious: Yes (Other)
  Sender: FDA-Public Use
  Company Number: 2014-US-010085

PATIENT
  Age: 35 Year
  Sex: Female
  Weight: 50.1 kg

DRUGS (1)
  1. XYREM [Suspect]
     Active Substance: SODIUM OXYBATE
     Indication: NARCOLEPSY
     Route: 048
     Dates: start: 201406, end: 2014

REACTIONS (3)
  - Paraesthesia [None]
  - Hypoaesthesia [None]
  - Animal bite [None]

NARRATIVE: CASE EVENT DATE: 201407
